FAERS Safety Report 6962227-4 (Version None)
Quarter: 2010Q3

REPORT INFORMATION
  Report Type: 
  Country: None (occurrence: None)
  Receive Date: 20100902
  Receipt Date: 20100830
  Transmission Date: 20110219
  Serious: Yes (Hospitalization, Other)
  Sender: FDA-Public Use
  Company Number: IE-WYE-G06551210

PATIENT
  Sex: Female

DRUGS (6)
  1. EFFEXOR XR [Suspect]
     Indication: DEPRESSION
     Dosage: 225 MG (FREQUENCY UNSPECIFIED)
     Route: 048
     Dates: start: 20100101, end: 20100801
  2. CLEXANE [Concomitant]
     Dosage: UNKNOWN
  3. TRAMADOL HCL [Concomitant]
     Dosage: UNKNOWN
  4. ACETAMINOPHEN [Concomitant]
     Dosage: UNKNOWN
  5. XARELTO [Suspect]
     Indication: KNEE ARTHROPLASTY
     Dosage: 10 MG (FREQUENCY UNSPECIFIED)
     Route: 048
     Dates: start: 20100303, end: 20100306
  6. LANSOPRAZOLE [Concomitant]
     Dosage: UNKNOWN

REACTIONS (4)
  - HAEMATOMA [None]
  - INFECTION [None]
  - OEDEMA PERIPHERAL [None]
  - PAIN [None]
